FAERS Safety Report 11383737 (Version 1)
Quarter: 2015Q3

REPORT INFORMATION
  Report Type: Spontaneous
  Country: US (occurrence: US)
  Receive Date: 20150814
  Receipt Date: 20150814
  Transmission Date: 20151125
  Serious: Yes (Hospitalization, Other)
  Sender: FDA-Public Use
  Company Number: GXBR2015US001842

PATIENT
  Sex: Female

DRUGS (1)
  1. AMITRIPTYLINE HCL TABLETS USP [Suspect]
     Active Substance: AMITRIPTYLINE HYDROCHLORIDE
     Indication: PRODUCT USED FOR UNKNOWN INDICATION
     Dosage: UNK DF, UNK
     Route: 065

REACTIONS (6)
  - Tremor [Recovered/Resolved]
  - Fall [Recovered/Resolved]
  - Neurological symptom [Recovering/Resolving]
  - Parkinsonism [Recovering/Resolving]
  - Dysarthria [Recovering/Resolving]
  - Memory impairment [Recovering/Resolving]
